FAERS Safety Report 14176163 (Version 1)
Quarter: 2017Q4

REPORT INFORMATION
  Report Type: Spontaneous
  Country: US (occurrence: US)
  Receive Date: 20171109
  Receipt Date: 20171109
  Transmission Date: 20180321
  Serious: No
  Sender: FDA-Public Use
  Company Number: US-ACTELION-A-US2017-162298

PATIENT
  Sex: Female

DRUGS (2)
  1. REMODULIN [Concomitant]
     Active Substance: TREPROSTINIL
  2. VELETRI [Suspect]
     Active Substance: EPOPROSTENOL
     Indication: PRODUCT USED FOR UNKNOWN INDICATION
     Dosage: UNK
     Route: 042
     Dates: end: 201705

REACTIONS (4)
  - Staphylococcal infection [Unknown]
  - Catheter site pain [Unknown]
  - Catheter site inflammation [Unknown]
  - Nausea [Unknown]

NARRATIVE: CASE EVENT DATE: 201705
